FAERS Safety Report 7786027-0 (Version None)
Quarter: 2011Q3

REPORT INFORMATION
  Report Type: 
  Country: None (occurrence: None)
  Receive Date: 20110929
  Receipt Date: 20110926
  Transmission Date: 20111222
  Serious: Yes (Death, Disabling)
  Sender: FDA-Public Use
  Company Number: US-CELGENEUS-163-21880-10122589

PATIENT
  Sex: Female

DRUGS (14)
  1. BACLOFEN [Concomitant]
     Route: 065
  2. ASPIRIN [Concomitant]
     Route: 065
  3. VITAMIN B-12 [Concomitant]
     Route: 065
  4. DECADRON [Concomitant]
     Route: 065
  5. GABAPENTIN [Concomitant]
     Route: 065
  6. FENTANYL [Concomitant]
     Route: 065
  7. REVLIMID [Suspect]
     Indication: MULTIPLE MYELOMA
     Dosage: 10 MILLIGRAM
     Route: 048
     Dates: start: 20100830, end: 20101217
  8. VICODIN ES [Concomitant]
     Route: 065
  9. NAHCO3 [Concomitant]
     Route: 065
  10. REGLAN [Concomitant]
     Route: 065
  11. ZOFRAN [Concomitant]
     Route: 065
  12. VITAMIN D [Concomitant]
     Route: 065
  13. DILAUDID [Concomitant]
     Route: 065
  14. ATIVAN [Concomitant]
     Route: 065

REACTIONS (2)
  - PNEUMONIA ASPIRATION [None]
  - NEUROPATHY PERIPHERAL [None]
